FAERS Safety Report 10994635 (Version 1)
Quarter: 2015Q2

REPORT INFORMATION
  Report Type: Spontaneous
  Country: US (occurrence: None)
  Receive Date: 20150406
  Receipt Date: 20150406
  Transmission Date: 20150821
  Serious: Yes (Other)
  Sender: FDA-Public Use
  Company Number: None

PATIENT
  Age: 78 Year
  Sex: Female
  Weight: 74.84 kg

DRUGS (12)
  1. VOLTAREN CREAM [Concomitant]
  2. FISH OIL [Concomitant]
     Active Substance: FISH OIL
  3. ACIPHEX [Concomitant]
     Active Substance: RABEPRAZOLE SODIUM
  4. ALLEGRA [Concomitant]
     Active Substance: FEXOFENADINE HYDROCHLORIDE
  5. TRAMADOL [Concomitant]
     Active Substance: TRAMADOL
  6. VITAMIN D2 [Concomitant]
     Active Substance: ERGOCALCIFEROL
  7. VITAMIN B12 [Concomitant]
     Active Substance: CYANOCOBALAMIN
  8. TYLENOL ARTHRITIS PAIN [Concomitant]
     Active Substance: ACETAMINOPHEN
  9. RABEPRAZOLE SOD DR TAB 20MG MYLAN [Suspect]
     Active Substance: RABEPRAZOLE SODIUM
     Indication: OESOPHAGEAL HAEMORRHAGE
     Dosage: ONE TABLET DAILY  ONCE DAILY  TAKEN BY MOUTH
     Route: 048
     Dates: start: 20150101, end: 20150228
  10. DILTIAZEM [Concomitant]
     Active Substance: DILTIAZEM
  11. RABEPRAZOLE SOD DR TAB 20MG MYLAN [Suspect]
     Active Substance: RABEPRAZOLE SODIUM
     Indication: GASTROOESOPHAGEAL REFLUX DISEASE
     Dosage: ONE TABLET DAILY  ONCE DAILY  TAKEN BY MOUTH
     Route: 048
     Dates: start: 20150101, end: 20150228
  12. CALCIUM [Concomitant]
     Active Substance: CALCIUM

REACTIONS (6)
  - Drug ineffective [None]
  - Product substitution issue [None]
  - Product quality issue [None]
  - Ulcer haemorrhage [None]
  - Abdominal pain upper [None]
  - Dyspepsia [None]

NARRATIVE: CASE EVENT DATE: 20150115
